FAERS Safety Report 7109865-6 (Version None)
Quarter: 2010Q4

REPORT INFORMATION
  Report Type: 
  Country: None (occurrence: None)
  Receive Date: 20101118
  Receipt Date: 20100811
  Transmission Date: 20110411
  Serious: No
  Sender: FDA-Public Use
  Company Number: US-MYLANLABS-2010S1014721

PATIENT
  Sex: Female

DRUGS (8)
  1. FOSAMAX [Suspect]
     Indication: OSTEOPOROSIS
     Route: 048
     Dates: start: 20080101, end: 20090101
  2. ALENDRONATE SODIUM [Suspect]
     Indication: OSTEOPOROSIS
     Route: 048
     Dates: start: 20090101
  3. DIAMOX SRC [Concomitant]
     Indication: EPILEPSY
  4. DEPAKOTE [Concomitant]
     Indication: EPILEPSY
  5. MYSOLINE [Concomitant]
     Indication: EPILEPSY
     Dates: start: 19950101
  6. KEPPRA [Concomitant]
     Indication: EPILEPSY
     Dates: start: 20040101
  7. LASIX [Concomitant]
     Indication: FLUID RETENTION
  8. SIMVASTATIN [Concomitant]
     Indication: BLOOD CHOLESTEROL INCREASED
     Dates: start: 20060101

REACTIONS (3)
  - ABDOMINAL DISTENSION [None]
  - ALOPECIA [None]
  - DIARRHOEA [None]
